FAERS Safety Report 9009385 (Version 1)
Quarter: 2013Q1

REPORT INFORMATION
  Report Type: Spontaneous
  Country: PH (occurrence: PH)
  Receive Date: 20130111
  Receipt Date: 20130111
  Transmission Date: 20140127
  Serious: Yes (Death, Other)
  Sender: FDA-Public Use
  Company Number: PHHY2013PH002268

PATIENT
  Sex: Male

DRUGS (1)
  1. GLIVEC [Suspect]
     Indication: GASTROINTESTINAL STROMAL TUMOUR
     Dosage: UNK UKN, UNK
     Dates: end: 2011

REACTIONS (5)
  - Death [Fatal]
  - Neoplasm [Unknown]
  - Tumour haemorrhage [Unknown]
  - Anaemia [Unknown]
  - Asthenia [Unknown]
